FAERS Safety Report 26190867 (Version 1)
Quarter: 2025Q4

REPORT INFORMATION
  Report Type: Spontaneous
  Country: US (occurrence: None)
  Receive Date: 20251222
  Receipt Date: 20251222
  Transmission Date: 20260117
  Serious: Yes (Hospitalization, Other)
  Sender: FDA-CTU
  Company Number: None

PATIENT
  Age: 46 Year
  Sex: Male
  Weight: 84.6 kg

DRUGS (1)
  1. HERBALS\TETRAHYDROCANNABINOL UNSPECIFIED [Suspect]
     Active Substance: HERBALS\TETRAHYDROCANNABINOL UNSPECIFIED
     Indication: Post-traumatic stress disorder
     Dosage: FREQUENCY : AS NEEDED;
     Route: 055

REACTIONS (3)
  - Palpitations [None]
  - Panic reaction [None]
  - Vertigo [None]

NARRATIVE: CASE EVENT DATE: 20251214
